FAERS Safety Report 5080906-3 (Version None)
Quarter: 2006Q3

REPORT INFORMATION
  Report Type: 
  Country: None (occurrence: None)
  Receive Date: 20060810
  Receipt Date: 20060728
  Transmission Date: 20061208
  Serious: Yes (Hospitalization)
  Sender: FDA-Public Use
  Company Number: 2006080223

PATIENT
  Age: 50 Year
  Sex: Male
  Weight: 55 kg

DRUGS (1)
  1. AZITHROMYCIN [Suspect]
     Indication: NASOPHARYNGITIS
     Dosage: 500 MG, ORAL
     Route: 048
     Dates: start: 20060605, end: 20060607

REACTIONS (4)
  - EOSINOPHILIA [None]
  - HEPATIC FUNCTION ABNORMAL [None]
  - JAUNDICE [None]
  - MALAISE [None]
